FAERS Safety Report 17265300 (Version 2)
Quarter: 2020Q1

REPORT INFORMATION
  Report Type: Spontaneous
  Country: US (occurrence: US)
  Receive Date: 20200114
  Receipt Date: 20200127
  Transmission Date: 20200409
  Serious: Yes (Death, Hospitalization, Other)
  Sender: FDA-Public Use
  Company Number: US-LUPIN PHARMACEUTICALS INC.-2020-00089

PATIENT
  Age: 32 Year
  Sex: Male

DRUGS (1)
  1. BUPROPION. [Suspect]
     Active Substance: BUPROPION
     Indication: PRODUCT USED FOR UNKNOWN INDICATION
     Dosage: UNK (UNKNOWN QUANTITYOF BUPROPION TABLETS)
     Route: 065

REACTIONS (11)
  - Electrocardiogram QRS complex prolonged [Fatal]
  - Completed suicide [Fatal]
  - Ejection fraction decreased [Fatal]
  - Cardiogenic shock [Fatal]
  - Electrocardiogram QT prolonged [Fatal]
  - Acute kidney injury [Unknown]
  - Somnolence [Unknown]
  - Generalised tonic-clonic seizure [Unknown]
  - Metabolic acidosis [Unknown]
  - Congestive cardiomyopathy [Fatal]
  - Overdose [Fatal]
